FAERS Safety Report 14288236 (Version 1)
Quarter: 2017Q4

REPORT INFORMATION
  Report Type: Spontaneous
  Country: IL (occurrence: IL)
  Receive Date: 20171215
  Receipt Date: 20171215
  Transmission Date: 20180321
  Serious: Yes (Disabling)
  Sender: FDA-Public Use
  Company Number: IL-ROCHE-2035187

PATIENT
  Sex: Female

DRUGS (1)
  1. AVASTIN [Suspect]
     Active Substance: BEVACIZUMAB
     Indication: AGE-RELATED MACULAR DEGENERATION
     Route: 031
     Dates: start: 201601

REACTIONS (4)
  - Eye infection [Recovered/Resolved with Sequelae]
  - Intentional product use issue [Unknown]
  - Blindness unilateral [Not Recovered/Not Resolved]
  - Off label use [Unknown]
